FAERS Safety Report 9445471 (Version 2)
Quarter: 2013Q3

REPORT INFORMATION
  Report Type: Spontaneous
  Country: JP (occurrence: None)
  Receive Date: 20130805
  Receipt Date: 20130821
  Transmission Date: 20140515
  Serious: Yes (Death, Hospitalization, Other)
  Sender: FDA-Public Use
  Company Number: TCI2013A04604

PATIENT
  Age: 74 Year
  Sex: Male

DRUGS (16)
  1. LANSAP [Suspect]
     Indication: HELICOBACTER GASTRITIS
     Dosage: 1 CARD (0.5 CARD, 2 IN 1 D), ORAL,
     Route: 048
     Dates: start: 20130717, end: 20130719
  2. HERBAL EXTRACT NOS [Concomitant]
  3. OLMETEC (OLMESARTAN MEDOXOMIL) [Concomitant]
  4. MAINTATE (BISOPROLOL FUMARATE) [Concomitant]
  5. ADALAT CR (NIFEDIPINE) [Concomitant]
  6. ZYLORIC (ALLOPURINOL) [Concomitant]
  7. DEPAS (ETIZOLAM) [Concomitant]
  8. ALIMAN (MEQUITAZINE) [Concomitant]
  9. ALLELOCK OD (OLOPATADINE HYDROCHLORIDE) [Concomitant]
  10. HYTHIOL (CYSTEINE) [Concomitant]
  11. TAMSULOSIN HYDROCHLORIDE OD (TAMSULOSIN HYDROCHLORIDE) [Concomitant]
  12. EVIPROSTAT DB (CHIMAPHILA UMBELLATA, EQUISETUM ARVENSE, PULSATILLA PRATENSIS, POPULUS TREMULOIDES) [Concomitant]
  13. DETOMEFAN (DEXTROMETHORPHAN HYDROBROMIDE) [Concomitant]
  14. ANTEBATE CREAM (BETAMETHASONE BUTYRATE PROPIONATE) [Concomitant]
  15. PASTARON CREAM (UREA) [Concomitant]
  16. SPIRAZON CREAM (PREDNISOLONE VALEROACETATE) [Concomitant]

REACTIONS (9)
  - Renal failure acute [None]
  - Malaise [None]
  - Interstitial lung disease [None]
  - Asthenia [None]
  - Dyspnoea [None]
  - Dizziness [None]
  - Pyrexia [None]
  - Oedema [None]
  - Haemorrhage subcutaneous [None]
